FAERS Safety Report 23623128 (Version 1)
Quarter: 2024Q1

REPORT INFORMATION
  Report Type: Spontaneous
  Country: IT (occurrence: IT)
  Receive Date: 20240312
  Receipt Date: 20240312
  Transmission Date: 20240409
  Serious: Yes (Other)
  Sender: FDA-Public Use
  Company Number: None

PATIENT
  Age: 44 Year
  Sex: Female
  Weight: 66 kg

DRUGS (4)
  1. FLUOROURACIL [Suspect]
     Active Substance: FLUOROURACIL
     Indication: Rectal cancer metastatic
     Dosage: START OF THERAPY 04/10/2023 - THERAPY EVERY 14 DAYS - 19/10 II CYCLE - BOLUS INFUSION.?DRUG ALSO ...
     Route: 042
     Dates: start: 20231019, end: 20231019
  2. LEVOLEUCOVORIN [Concomitant]
     Active Substance: LEVOLEUCOVORIN
     Indication: Product used for unknown indication
     Dosage: ACIDO LEVO FOLINICO
  3. AFLIBERCEPT [Suspect]
     Active Substance: AFLIBERCEPT
     Indication: Rectal cancer metastatic
     Dosage: START OF THERAPY 04/10/2023 - THERAPY EVERY 14 DAYS - 19/10 II CYCLE
     Route: 042
     Dates: start: 20231019, end: 20231019
  4. IRINOTECAN [Suspect]
     Active Substance: IRINOTECAN
     Indication: Rectal cancer metastatic
     Dosage: START OF THERAPY 04/10/2023 - THERAPY EVERY 14 DAYS - 19/10 II CYCLE
     Route: 042
     Dates: start: 20231019, end: 20231019

REACTIONS (2)
  - Neutropenia [Recovering/Resolving]
  - Leukopenia [Recovering/Resolving]

NARRATIVE: CASE EVENT DATE: 20231110
